FAERS Safety Report 5490497-0 (Version None)
Quarter: 2007Q4

REPORT INFORMATION
  Report Type: 
  Country: None (occurrence: None)
  Receive Date: 20071017
  Receipt Date: 20071017
  Transmission Date: 20080405
  Serious: Yes (Life-Threatening, Hospitalization, Disabling, Other)
  Sender: FDA-Public Use
  Company Number: None

PATIENT
  Age: 31 Year
  Sex: Female
  Weight: 113.3993 kg

DRUGS (1)
  1. NUVARING [Suspect]
     Indication: MENSTRUATION IRREGULAR
     Dosage: USED ONCE MONTHLY
     Dates: start: 20030224, end: 20030308

REACTIONS (8)
  - BLOOD GLUCOSE INCREASED [None]
  - CHEST PAIN [None]
  - DEEP VEIN THROMBOSIS [None]
  - HEADACHE [None]
  - OEDEMA PERIPHERAL [None]
  - PULMONARY THROMBOSIS [None]
  - PYREXIA [None]
  - VISION BLURRED [None]
